FAERS Safety Report 5912612-4 (Version None)
Quarter: 2008Q3

REPORT INFORMATION
  Report Type: 
  Country: None (occurrence: None)
  Receive Date: 20080919
  Receipt Date: 20080731
  Transmission Date: 20090109
  Serious: Yes (Hospitalization)
  Sender: FDA-Public Use
  Company Number: 2008-04640

PATIENT
  Age: 56 Year
  Sex: Female
  Weight: 63.5 kg

DRUGS (10)
  1. FENTANYL [Suspect]
     Indication: BACK PAIN
     Dosage: 25 MCG, Q3DAYS, TRANSDERMAL ; 1 PATCH, Q 3 DAYS, TRANSDERMAL
     Route: 062
     Dates: start: 20070810, end: 20080503
  2. FENTANYL [Suspect]
     Indication: NECK PAIN
     Dosage: 25 MCG, Q3DAYS, TRANSDERMAL ; 1 PATCH, Q 3 DAYS, TRANSDERMAL
     Route: 062
     Dates: start: 20070810, end: 20080503
  3. FENTANYL [Suspect]
     Indication: BACK PAIN
     Dosage: 25 MCG, Q3DAYS, TRANSDERMAL ; 1 PATCH, Q 3 DAYS, TRANSDERMAL
     Route: 062
     Dates: start: 20080503, end: 20080510
  4. FENTANYL [Suspect]
     Indication: NECK PAIN
     Dosage: 25 MCG, Q3DAYS, TRANSDERMAL ; 1 PATCH, Q 3 DAYS, TRANSDERMAL
     Route: 062
     Dates: start: 20080503, end: 20080510
  5. LORTAB [Concomitant]
  6. HYDRODIURIL [Concomitant]
  7. POTASSIUM CHLORIDE [Concomitant]
  8. PREMARIN [Concomitant]
  9. LYRICA [Concomitant]
  10. XANAX [Concomitant]

REACTIONS (8)
  - CHEST PAIN [None]
  - CONFUSIONAL STATE [None]
  - DIZZINESS [None]
  - DYSPNOEA [None]
  - FATIGUE [None]
  - GAIT DISTURBANCE [None]
  - OVERDOSE [None]
  - TINNITUS [None]
